FAERS Safety Report 4717237-4 (Version None)
Quarter: 2005Q3

REPORT INFORMATION
  Report Type: 
  Country: None (occurrence: None)
  Receive Date: 20050715
  Receipt Date: 20050706
  Transmission Date: 20060218
  Serious: Yes (Life-Threatening, Hospitalization)
  Sender: FDA-Public Use
  Company Number: 2005-02342

PATIENT
  Age: 79 Year
  Sex: Male

DRUGS (6)
  1. TRAMADOL HCL [Suspect]
     Indication: BACK PAIN
     Dosage: UNKNOWN DOSE, USED FOR 17 DAYS, UNKNOWN
     Dates: start: 20050101
  2. RAMIPRIL (RAMIPRIL) TABLET [Suspect]
     Dosage: ORAL
     Route: 048
     Dates: end: 20050101
  3. ASPIRIN [Concomitant]
  4. FELODIPINE [Concomitant]
  5. SIMVASTATIN [Concomitant]
  6. SOTALOL HCL [Concomitant]

REACTIONS (1)
  - ANGIONEUROTIC OEDEMA [None]
